FAERS Safety Report 12996723 (Version 5)
Quarter: 2016Q4

REPORT INFORMATION
  Report Type: Spontaneous
  Country: BR (occurrence: BR)
  Receive Date: 20161204
  Receipt Date: 20161222
  Transmission Date: 20170207
  Serious: Yes (Death, Hospitalization)
  Sender: FDA-Public Use
  Company Number: PHHY2016BR153733

PATIENT
  Age: 68 Year
  Sex: Female

DRUGS (3)
  1. COSENTYX [Suspect]
     Active Substance: SECUKINUMAB
     Indication: PSORIASIS
     Dosage: 300 MG, UNK
     Route: 065
     Dates: start: 20161021
  2. CICLOSPORIN [Concomitant]
     Active Substance: CYCLOSPORINE
     Indication: RENAL FAILURE
     Route: 065
  3. COSENTYX [Suspect]
     Active Substance: SECUKINUMAB
     Dosage: 300 MG, UNK
     Route: 065
     Dates: start: 20161028

REACTIONS (18)
  - Blood creatinine abnormal [Unknown]
  - Angioedema [Recovering/Resolving]
  - Asthenia [Unknown]
  - Urticaria [Recovered/Resolved]
  - Face oedema [Unknown]
  - Mouth ulceration [Unknown]
  - Pancreatitis acute [Unknown]
  - Dermatitis exfoliative [Recovering/Resolving]
  - Renal failure [Unknown]
  - Gamma-glutamyltransferase increased [Unknown]
  - Rash maculo-papular [Recovering/Resolving]
  - Pancreatic insufficiency [Unknown]
  - Skin exfoliation [Unknown]
  - Vaginal ulceration [Unknown]
  - Erythema [Unknown]
  - Pruritus [Unknown]
  - Pyrexia [Recovered/Resolved]
  - Septic shock [Fatal]

NARRATIVE: CASE EVENT DATE: 20161021
